FAERS Safety Report 6952029-7 (Version None)
Quarter: 2010Q3

REPORT INFORMATION
  Report Type: 
  Country: None (occurrence: None)
  Receive Date: 20100829
  Receipt Date: 20100423
  Transmission Date: 20110219
  Serious: No
  Sender: FDA-Public Use
  Company Number: US-ABBOTT-10P-163-0640604-00

PATIENT
  Sex: Female
  Weight: 78.088 kg

DRUGS (4)
  1. NIASPAN [Suspect]
     Indication: HIGH DENSITY LIPOPROTEIN DECREASED
     Dosage: AT BEDTIME
     Route: 048
     Dates: start: 20100425
  2. WALGREENS SINUS AND ALLERGY PILLS [Suspect]
     Indication: SINUS HEADACHE
     Dates: start: 20100503, end: 20100503
  3. UNKNOWN WATER PILL [Concomitant]
     Indication: HYPERTENSION
     Route: 048
  4. UNKNOWN SUPPLEMENT [Concomitant]
     Indication: HYPERTENSION

REACTIONS (6)
  - DIZZINESS [None]
  - FEELING HOT [None]
  - FLUSHING [None]
  - FORMICATION [None]
  - NAUSEA [None]
  - SINUS HEADACHE [None]
